FAERS Safety Report 17470684 (Version 2)
Quarter: 2020Q1

REPORT INFORMATION
  Report Type: Spontaneous
  Country: US (occurrence: US)
  Receive Date: 20200227
  Receipt Date: 20200309
  Transmission Date: 20200409
  Serious: Yes (Hospitalization)
  Sender: FDA-Public Use
  Company Number: US-FRESENIUS MEDICAL CARE RENAL THERAPIES GROUP-FMC-2002-000237

PATIENT
  Sex: Male
  Weight: 74 kg

DRUGS (11)
  1. DELFLEX WITH DEXTROSE 4.25% LOW MAGNESIUM LOW CALCIUM [Suspect]
     Active Substance: CALCIUM CHLORIDE\DEXTROSE\MAGNESIUM CHLORIDE\SODIUM CHLORIDE\SODIUM LACTATE
     Indication: END STAGE RENAL DISEASE
     Dosage: FILL VOLUME = 2000 ML, 7 EXCHANGES, LAST FILL = 2000 ML, NO DAYTIME EXCHANGE, DWELL TIME = 1 HOUR AN
     Route: 033
     Dates: start: 20180323
  2. DELFLEX WITH DEXTROSE 2.5% LOW MAGNESIUM LOW CALCIUM [Suspect]
     Active Substance: CALCIUM CHLORIDE\DEXTROSE\MAGNESIUM CHLORIDE\SODIUM CHLORIDE\SODIUM LACTATE
     Indication: END STAGE RENAL DISEASE
     Dosage: FILL VOLUME = 2000 ML, 7 EXCHANGES, LAST FILL = 2000 ML, NO DAYTIME EXCHANGE, DWELL TIME = 1 HOUR AN
     Route: 033
     Dates: start: 20180323
  3. LACTULOSE. [Concomitant]
     Active Substance: LACTULOSE
  4. LISINOPRIL. [Concomitant]
     Active Substance: LISINOPRIL
  5. RENAVITE [Concomitant]
     Active Substance: ASCORBIC ACID\BIOTIN\CALCIUM PANTOTHENATE\CYANOCOBALAMIN\FOLIC ACID\NIACINAMIDE\PYRIDOXINE HYDROCHLORIDE\RIBOFLAVIN\THIAMINE MONONITRATE
  6. AMLODIPINE [Concomitant]
     Active Substance: AMLODIPINE BESYLATE
  7. CARVEDILOL. [Concomitant]
     Active Substance: CARVEDILOL
  8. RENVELA [Concomitant]
     Active Substance: SEVELAMER CARBONATE
  9. DELFLEX WITH DEXTROSE 1.5% LOW MAGNESIUM LOW CALCIUM [Suspect]
     Active Substance: CALCIUM CHLORIDE\DEXTROSE\MAGNESIUM CHLORIDE\SODIUM CHLORIDE\SODIUM LACTATE
     Indication: END STAGE RENAL DISEASE
     Dosage: FILL VOLUME = 2000 ML, 7 EXCHANGES, LAST FILL = 2000 ML, NO DAYTIME EXCHANGE, DWELL TIME = 1 HOUR AN
     Route: 033
     Dates: start: 20180323
  10. CALCITRIOL. [Concomitant]
     Active Substance: CALCITRIOL
  11. VELPHORO [Concomitant]
     Active Substance: FERRIC OXYHYDROXIDE

REACTIONS (1)
  - Peritonitis bacterial [Recovering/Resolving]
